FAERS Safety Report 9118283 (Version 1)
Quarter: 2013Q1

REPORT INFORMATION
  Report Type: Spontaneous
  Country: US (occurrence: None)
  Receive Date: 20130221
  Receipt Date: 20130221
  Transmission Date: 20140127
  Serious: Yes (Other)
  Sender: FDA-Public Use
  Company Number: None

PATIENT
  Sex: Female
  Weight: 97.52 kg

DRUGS (1)
  1. JANUMET [Suspect]
     Indication: DIABETES MELLITUS
     Dosage: 50 - 1000  TWICE DAILY
     Dates: start: 20120727, end: 201301

REACTIONS (11)
  - Muscular weakness [None]
  - Pain in extremity [None]
  - Local swelling [None]
  - Local swelling [None]
  - Muscular weakness [None]
  - Activities of daily living impaired [None]
  - Pain [None]
  - Madarosis [None]
  - Dry eye [None]
  - Dry mouth [None]
  - Nail disorder [None]
